FAERS Safety Report 11475731 (Version 1)
Quarter: 2015Q3

REPORT INFORMATION
  Report Type: Spontaneous
  Country: TR (occurrence: TR)
  Receive Date: 20150909
  Receipt Date: 20150909
  Transmission Date: 20151125
  Serious: Yes (Other)
  Sender: FDA-Public Use
  Company Number: TR-SUN PHARMACEUTICAL INDUSTRIES LTD-2015RR-102799

PATIENT

DRUGS (3)
  1. RISPERIDONE. [Concomitant]
     Active Substance: RISPERIDONE
     Indication: PSYCHOTIC BEHAVIOUR
     Dosage: 8 MG, DAILY
     Route: 065
  2. LORAZEPAM. [Suspect]
     Active Substance: LORAZEPAM
     Indication: PSYCHOTIC BEHAVIOUR
     Dosage: INITIAL DOSE 2 MG DAILY FOR 1 WEEK, THAN DOSE DECREASED TO 1 MG DAILY, THEN DECREASED TO UNK DOSE
     Route: 065
  3. RISPERIDONE. [Concomitant]
     Active Substance: RISPERIDONE
     Indication: PSYCHOTIC BEHAVIOUR
     Dosage: 4 MG, DAILY
     Route: 065

REACTIONS (2)
  - Condition aggravated [Unknown]
  - Withdrawal syndrome [Unknown]
